FAERS Safety Report 7250980-4 (Version None)
Quarter: 2011Q1

REPORT INFORMATION
  Report Type: 
  Country: None (occurrence: None)
  Receive Date: 20110128
  Receipt Date: 20110118
  Transmission Date: 20110831
  Serious: Yes (Death, Life-Threatening)
  Sender: FDA-Public Use
  Company Number: B0644287A

PATIENT
  Age: 64 Year
  Sex: Female
  Weight: 52 kg

DRUGS (23)
  1. LAPATINIB [Suspect]
     Dosage: 1000MG PER DAY
     Route: 048
  2. ZOFRAN [Concomitant]
     Dosage: 4MG PER DAY
     Dates: start: 20100324, end: 20100326
  3. OXALIPLATIN [Suspect]
     Route: 042
  4. ZOFRAN [Concomitant]
     Indication: NAUSEA
     Dates: start: 20100324
  5. TRAMAL [Concomitant]
     Dosage: 100ML UNKNOWN
     Dates: start: 20100324, end: 20100326
  6. CREON [Concomitant]
     Indication: PANCREATIC INSUFFICIENCY
     Dosage: 25000IU PER DAY
     Dates: start: 20091001, end: 20100326
  7. BETALOC ZOK [Concomitant]
     Dosage: 47.5MG UNKNOWN
     Dates: start: 20100317, end: 20100326
  8. IBUPROFEN [Concomitant]
     Dosage: 400MG PER DAY
     Dates: start: 20100317, end: 20100326
  9. 5-FU [Suspect]
  10. MOXONIDIN [Concomitant]
     Indication: HYPERTENSION
     Dosage: .2MG PER DAY
     Dates: end: 20100326
  11. ATOSIL [Concomitant]
     Dosage: 30ML PER DAY
     Dates: start: 20100324, end: 20100326
  12. NEXIUM [Concomitant]
     Indication: GASTRITIS
     Dosage: 20MG PER DAY
  13. METOPROLOL SUCCINATE [Concomitant]
     Dosage: 47.5MG PER DAY
     Dates: start: 20100317, end: 20100326
  14. FOLINIC ACID [Suspect]
  15. COTRIM [Concomitant]
     Indication: CYSTITIS
     Dates: start: 20100325, end: 20100326
  16. LASIX [Concomitant]
     Indication: PROPHYLAXIS
     Dosage: 20MG PER DAY
     Dates: start: 20100101, end: 20100326
  17. ATOSIL [Concomitant]
     Dosage: 30ML PER DAY
     Dates: start: 20100324
  18. TRAMAL [Concomitant]
     Indication: PAIN
     Dosage: 100ML PER DAY
     Dates: start: 20100324
  19. APSOMOL [Concomitant]
     Dosage: 6.7G PER DAY
     Dates: start: 20100324, end: 20100326
  20. METOPROLOL [Concomitant]
     Indication: HYPERTENSION
     Dosage: 18.75MG PER DAY
     Dates: start: 20100315, end: 20100326
  21. METAMIZOL [Concomitant]
     Indication: PAIN
     Dosage: 750MG THREE TIMES PER DAY
     Dates: start: 20100101, end: 20100326
  22. APSOMOL [Concomitant]
     Indication: ASTHMA
     Dates: start: 20100324
  23. IBUPROFEN [Concomitant]
     Indication: PAIN
     Dosage: 40MG PER DAY
     Dates: start: 20100317

REACTIONS (7)
  - LOSS OF CONSCIOUSNESS [None]
  - HEPATIC FAILURE [None]
  - HEPATIC ENZYME DECREASED [None]
  - HYPOGLYCAEMIA [None]
  - SEPSIS [None]
  - ASPHYXIA [None]
  - THROMBOCYTOPENIA [None]
